FAERS Safety Report 9550643 (Version 1)
Quarter: 2013Q3

REPORT INFORMATION
  Report Type: Spontaneous
  Country: US (occurrence: US)
  Receive Date: 20130924
  Receipt Date: 20130924
  Transmission Date: 20140515
  Serious: No
  Sender: FDA-Public Use
  Company Number: US-SANOFI-AVENTIS-2013SA010648

PATIENT
  Age: 46 Year
  Sex: Female

DRUGS (9)
  1. AUBAGIO [Suspect]
     Indication: MULTIPLE SCLEROSIS
     Route: 048
     Dates: start: 201212
  2. ALLOPURINOL [Concomitant]
  3. AMPYRA [Concomitant]
     Route: 065
  4. REQUIP [Concomitant]
     Route: 065
  5. AMBIEN [Concomitant]
     Route: 065
  6. TRAZODONE [Concomitant]
     Route: 065
  7. LORTAB [Concomitant]
     Dosage: LORTAB 7.5-500
     Route: 065
  8. VITAMIN D [Concomitant]
     Dosage: DOSE:5000 UNIT(S)
     Route: 065
  9. DEXILANT [Concomitant]
     Route: 065

REACTIONS (8)
  - Mood swings [Unknown]
  - Depression [Unknown]
  - Dizziness [Unknown]
  - Chromaturia [Unknown]
  - Heart rate increased [Unknown]
  - Palpitations [Unknown]
  - Alopecia [Unknown]
  - Nausea [Unknown]
